FAERS Safety Report 16582435 (Version 1)
Quarter: 2019Q3

REPORT INFORMATION
  Report Type: Spontaneous
  Country: QA (occurrence: QA)
  Receive Date: 20190717
  Receipt Date: 20190717
  Transmission Date: 20191004
  Serious: Yes (Hospitalization, Other)
  Sender: FDA-Public Use
  Company Number: QA-ALKEM LABORATORIES LIMITED-QA-ALKEM-2019-04900

PATIENT
  Age: 67 Year
  Sex: Male

DRUGS (1)
  1. ATORVASTATIN CALCIUM. [Suspect]
     Active Substance: ATORVASTATIN CALCIUM
     Indication: PRODUCT USED FOR UNKNOWN INDICATION
     Dosage: 40 MILLIGRAM
     Route: 065

REACTIONS (3)
  - Acute kidney injury [Unknown]
  - Drug-induced liver injury [Unknown]
  - Rhabdomyolysis [Unknown]
